FAERS Safety Report 7721332-5 (Version None)
Quarter: 2011Q3

REPORT INFORMATION
  Report Type: 
  Country: None (occurrence: None)
  Receive Date: 20110831
  Receipt Date: 20110217
  Transmission Date: 20111222
  Serious: No
  Sender: FDA-Public Use
  Company Number: US-BAYER-2011-016434

PATIENT
  Age: 20 Year
  Sex: Male

DRUGS (1)
  1. MIRENA [Suspect]
     Indication: CONTRACEPTION
     Dosage: 20 ?G/D, CONT
     Route: 015
     Dates: start: 20100901

REACTIONS (5)
  - MOOD SWINGS [None]
  - GENITAL HAEMORRHAGE [None]
  - DEVICE DISLOCATION [None]
  - VAGINAL DISCHARGE [None]
  - DIZZINESS [None]
